FAERS Safety Report 6270344-X (Version None)
Quarter: 2009Q3

REPORT INFORMATION
  Report Type: 
  Country: None (occurrence: None)
  Receive Date: 20090716
  Receipt Date: 20090706
  Transmission Date: 20100115
  Serious: Yes (Other)
  Sender: FDA-Public Use
  Company Number: B0548322A

PATIENT
  Sex: Female

DRUGS (3)
  1. LAMICTAL [Suspect]
     Indication: EPILEPSY
     Route: 048
     Dates: start: 20060806
  2. SPECIAFOLDINE [Concomitant]
     Route: 048
     Dates: start: 20070901
  3. VITAMIN D [Concomitant]
     Dosage: 3DROP PER DAY
     Route: 048
     Dates: start: 20080101

REACTIONS (5)
  - DRUG EXPOSURE DURING PREGNANCY [None]
  - ELECTROENCEPHALOGRAM ABNORMAL [None]
  - LIVE BIRTH [None]
  - LOSS OF CONSCIOUSNESS [None]
  - URINARY INCONTINENCE [None]
